FAERS Safety Report 14151690 (Version 2)
Quarter: 2017Q4

REPORT INFORMATION
  Report Type: Report from Study
  Country: None (occurrence: US)
  Receive Date: 20171102
  Receipt Date: 20171123
  Transmission Date: 20180321
  Serious: Yes (Hospitalization)
  Sender: FDA-Public Use
  Company Number: US-ABBVIE-17K-163-2136484-00

PATIENT
  Age: 66 Year
  Sex: Female

DRUGS (13)
  1. CELEBREX [Concomitant]
     Active Substance: CELECOXIB
     Indication: ARTHRITIS
  2. HYDROXYCHLOROQUINE [Concomitant]
     Active Substance: HYDROXYCHLOROQUINE
     Indication: RHEUMATOID ARTHRITIS
  3. ACIPHEX [Concomitant]
     Active Substance: RABEPRAZOLE SODIUM
     Indication: GASTRIC DISORDER
  4. ZOLPIDEM [Concomitant]
     Active Substance: ZOLPIDEM\ZOLPIDEM TARTRATE
     Indication: INSOMNIA
  5. TOVIAZ [Concomitant]
     Active Substance: FESOTERODINE FUMARATE
     Indication: BLADDER DISORDER
  6. ESTRACE [Concomitant]
     Active Substance: ESTRADIOL
     Indication: HORMONE LEVEL ABNORMAL
  7. PREDNISONE. [Concomitant]
     Active Substance: PREDNISONE
     Indication: RHEUMATOID ARTHRITIS
  8. CARBAMAZEPINE. [Concomitant]
     Active Substance: CARBAMAZEPINE
     Indication: POLYNEUROPATHY
  9. HUMIRA [Suspect]
     Active Substance: ADALIMUMAB
     Indication: RHEUMATOID ARTHRITIS
     Route: 058
     Dates: start: 201709
  10. METOPROLOL. [Concomitant]
     Active Substance: METOPROLOL
     Indication: HEART RATE IRREGULAR
  11. SYNTHROID [Concomitant]
     Active Substance: LEVOTHYROXINE SODIUM
     Indication: THYROID DISORDER
  12. CARBAMAZEPINE. [Concomitant]
     Active Substance: CARBAMAZEPINE
     Indication: NERVE INJURY
  13. DULOXETINE. [Concomitant]
     Active Substance: DULOXETINE
     Indication: NERVE INJURY

REACTIONS (13)
  - Injection site pruritus [Unknown]
  - Time perception altered [Unknown]
  - Nasal discomfort [Not Recovered/Not Resolved]
  - Injection site erythema [Recovered/Resolved]
  - Neck pain [Not Recovered/Not Resolved]
  - Injection site mass [Unknown]
  - Injection site erythema [Unknown]
  - Head injury [Not Recovered/Not Resolved]
  - Injection site pruritus [Recovered/Resolved]
  - Fall [Recovering/Resolving]
  - Facial pain [Not Recovered/Not Resolved]
  - Nasal injury [Not Recovered/Not Resolved]
  - Injection site rash [Recovered/Resolved]

NARRATIVE: CASE EVENT DATE: 2017
